APPROVED DRUG PRODUCT: FEBUXOSTAT
Active Ingredient: FEBUXOSTAT
Strength: 80MG
Dosage Form/Route: TABLET;ORAL
Application: A207293 | Product #002 | TE Code: AB
Applicant: MACLEODS PHARMACEUTICALS LTD
Approved: Sep 28, 2023 | RLD: No | RS: No | Type: RX